FAERS Safety Report 7231083-1 (Version None)
Quarter: 2011Q1

REPORT INFORMATION
  Report Type: 
  Country: None (occurrence: None)
  Receive Date: 20110118
  Receipt Date: 20110113
  Transmission Date: 20110831
  Serious: Yes (Other)
  Sender: FDA-Public Use
  Company Number: US-BRISTOL-MYERS SQUIBB COMPANY-14932156

PATIENT
  Age: 34 Year
  Sex: Male
  Weight: 86 kg

DRUGS (2)
  1. ABILIFY [Suspect]
     Indication: DEPRESSION
     Route: 048
     Dates: start: 20090901
  2. ANAFRANIL [Suspect]
     Indication: DEPRESSION

REACTIONS (6)
  - MANIA [None]
  - RESTLESSNESS [None]
  - DIABETES MELLITUS [None]
  - AKATHISIA [None]
  - FEELING HOT [None]
  - INSOMNIA [None]
